FAERS Safety Report 13342706 (Version 2)
Quarter: 2017Q2

REPORT INFORMATION
  Report Type: Spontaneous
  Country: US (occurrence: US)
  Receive Date: 20170316
  Receipt Date: 20170417
  Transmission Date: 20170830
  Serious: Yes (Other)
  Sender: FDA-Public Use
  Company Number: US-JNJFOC-20170309887

PATIENT
  Sex: Male

DRUGS (1)
  1. XARELTO [Suspect]
     Active Substance: RIVAROXABAN
     Indication: ANTICOAGULANT THERAPY
     Route: 048

REACTIONS (11)
  - Wound haemorrhage [Recovered/Resolved]
  - Skin abrasion [Unknown]
  - Wound haemorrhage [Unknown]
  - Fall [Recovered/Resolved]
  - Increased tendency to bruise [Unknown]
  - Procedural haemorrhage [Unknown]
  - Product shape issue [Unknown]
  - Arthralgia [Recovered/Resolved]
  - Haemorrhage [Unknown]
  - Haemorrhagic diathesis [Unknown]
  - Accident [Recovered/Resolved]

NARRATIVE: CASE EVENT DATE: 201612
